FAERS Safety Report 5615089-1 (Version None)
Quarter: 2008Q1

REPORT INFORMATION
  Report Type: 
  Country: None (occurrence: None)
  Receive Date: 20080131
  Receipt Date: 20080118
  Transmission Date: 20080703
  Serious: Yes (Death)
  Sender: FDA-Public Use
  Company Number: 2008JP000144

PATIENT
  Age: 86 Year
  Sex: Male

DRUGS (5)
  1. FUNGUARD (MICAFUNGIN) INJECTION [Suspect]
     Indication: PULMONARY MYCOSIS
     Dosage: 300 MG, IV DRIP
     Route: 041
     Dates: start: 20071201, end: 20080101
  2. TARGOCID [Suspect]
     Dosage: IV DRIP
     Route: 041
     Dates: start: 20071201, end: 20080101
  3. PACIL (PAZUFLOXACIN) [Concomitant]
  4. FLAGYL [Concomitant]
  5. PRODIF (FLUCONAZOLE) [Concomitant]

REACTIONS (2)
  - EOSINOPHIL COUNT INCREASED [None]
  - PYREXIA [None]
